FAERS Safety Report 15310939 (Version 1)
Quarter: 2018Q3

REPORT INFORMATION
  Report Type: Spontaneous
  Country: US (occurrence: US)
  Receive Date: 20180813
  Receipt Date: 20180813
  Transmission Date: 20181010
  Serious: Yes (Disabling)
  Sender: FDA-Public Use
  Company Number: None

PATIENT
  Sex: Male
  Weight: 96.16 kg

DRUGS (8)
  1. PANTOPRAZOLE [Concomitant]
     Active Substance: PANTOPRAZOLE
  2. FEXOFENDRINE [Concomitant]
  3. PRAVASTATIN. [Concomitant]
     Active Substance: PRAVASTATIN
  4. GABAPENTIN. [Concomitant]
     Active Substance: GABAPENTIN
  5. HIGHER FIBER PSYLLIUM HUSK [Concomitant]
  6. LEVOTHROID [Concomitant]
     Active Substance: LEVOTHYROXINE SODIUM
  7. GADOLINIUM CONTRAST AGENT [Suspect]
     Active Substance: GADOLINIUM
  8. FLUTICASONE PROPONIANTE NASAL SPRAY [Concomitant]

REACTIONS (8)
  - Burning sensation [None]
  - Chronic fatigue syndrome [None]
  - Bone pain [None]
  - Fibromyalgia [None]
  - Paraesthesia [None]
  - Fatigue [None]
  - Headache [None]
  - Organic brain syndrome [None]
